FAERS Safety Report 7729635-5 (Version None)
Quarter: 2011Q3

REPORT INFORMATION
  Report Type: 
  Country: None (occurrence: None)
  Receive Date: 20110906
  Receipt Date: 20110901
  Transmission Date: 20111222
  Serious: Yes (Hospitalization, Other)
  Sender: FDA-Public Use
  Company Number: US-AMGEN-USASP2011042496

PATIENT
  Age: 43 Year
  Sex: Male

DRUGS (1)
  1. ENBREL [Suspect]
     Indication: PSORIASIS
     Dosage: 50 MG, QWK
     Dates: start: 20090813, end: 20110705

REACTIONS (5)
  - PSORIASIS [None]
  - LIVER SCAN ABNORMAL [None]
  - APPENDICITIS [None]
  - THERAPEUTIC RESPONSE DECREASED [None]
  - INFLUENZA [None]
